FAERS Safety Report 16482336 (Version 1)
Quarter: 2019Q2

REPORT INFORMATION
  Report Type: Spontaneous
  Country: SE (occurrence: SE)
  Receive Date: 20190627
  Receipt Date: 20190627
  Transmission Date: 20190711
  Serious: Yes (Hospitalization)
  Sender: FDA-Public Use
  Company Number: SE-TEVA-2019-SE-1069600

PATIENT
  Age: 24 Year
  Sex: Female

DRUGS (4)
  1. LERGIGAN (PROMETHAZINE HYDROCHLORIDE) [Suspect]
     Active Substance: PROMETHAZINE HYDROCHLORIDE
     Dosage: ^UNCLEAR NUMBER ^
     Route: 048
     Dates: start: 20190404, end: 20190404
  2. QUETIAPINE. [Suspect]
     Active Substance: QUETIAPINE
     Dosage: 25 MG, 4 PCS
     Route: 048
     Dates: start: 20190404, end: 20190404
  3. IMOVANE [Suspect]
     Active Substance: ZOPICLONE
     Dosage: ^10-12 PCS^
     Route: 048
     Dates: start: 20190404, end: 20190404
  4. SEROQUEL [Suspect]
     Active Substance: QUETIAPINE FUMARATE
     Dosage: ^10-12ND ^ A 50 MG
     Route: 048
     Dates: start: 20190404, end: 20190404

REACTIONS (2)
  - Intentional self-injury [Unknown]
  - Intentional overdose [Unknown]

NARRATIVE: CASE EVENT DATE: 20190404
